FAERS Safety Report 23994036 (Version 1)
Quarter: 2024Q2

REPORT INFORMATION
  Report Type: Report from Study
  Country: IN (occurrence: IN)
  Receive Date: 20240620
  Receipt Date: 20240620
  Transmission Date: 20240715
  Serious: Yes (Other)
  Sender: FDA-Public Use
  Company Number: IN-CIPLA LTD.-2024IN06086

PATIENT

DRUGS (4)
  1. WARFARIN [Suspect]
     Active Substance: WARFARIN
     Indication: Anticoagulant therapy
     Dosage: DOSE- 1 (UNSPECIFIED UNITS), FREQUENCY- 1 (UNSPECIFIED UNITS)
     Route: 048
  2. METAPRO-XL [Concomitant]
     Indication: Product used for unknown indication
     Dosage: 50 MILLIGRAM, QD
     Route: 065
  3. TORSINEX [TORASEMIDE] [Concomitant]
     Indication: Product used for unknown indication
     Dosage: 10 MILLIGRAM, QD
     Route: 065
  4. ASPIRIN [Concomitant]
     Active Substance: ASPIRIN
     Indication: Product used for unknown indication
     Dosage: 75 MILLIGRAM, QD
     Route: 065

REACTIONS (3)
  - Swelling face [Not Recovered/Not Resolved]
  - Epistaxis [Not Recovered/Not Resolved]
  - Tooth pulp haemorrhage [Not Recovered/Not Resolved]

NARRATIVE: CASE EVENT DATE: 20240501
